FAERS Safety Report 7943747-2 (Version None)
Quarter: 2011Q4

REPORT INFORMATION
  Report Type: 
  Country: None (occurrence: None)
  Receive Date: 20111128
  Receipt Date: 20111118
  Transmission Date: 20120403
  Serious: Yes (Hospitalization, Other)
  Sender: FDA-Public Use
  Company Number: DE-PFIZER INC-2011243797

PATIENT
  Age: 23 Year
  Sex: Female
  Weight: 68 kg

DRUGS (6)
  1. CYCLOSPORINE [Suspect]
     Indication: GLOMERULONEPHRITIS MEMBRANOUS
     Dosage: 150 MG, 2X/DAY
     Route: 048
     Dates: start: 20091031, end: 20110131
  2. ENOXAPARIN SODIUM [Concomitant]
     Indication: DEEP VEIN THROMBOSIS
     Dosage: 60 MG AND 80 MG DAILY (140 MG/DAY)
     Route: 048
     Dates: start: 20110114, end: 20110131
  3. RAMIPRIL [Suspect]
     Indication: GLOMERULONEPHRITIS MEMBRANOUS
     Dosage: 5 MG, 1X/DAY
     Route: 048
     Dates: start: 20101031, end: 20110126
  4. FALITHROM [Suspect]
     Indication: PULMONARY EMBOLISM
     Dosage: 3 MG, 2X/DAY
     Route: 048
     Dates: start: 20091031, end: 20110113
  5. TORSEMIDE [Suspect]
     Indication: GLOMERULONEPHRITIS MEMBRANOUS
     Dosage: 10 MG, UNK
     Route: 048
     Dates: start: 20101031, end: 20110126
  6. PREDNISOLONE [Concomitant]
     Indication: SYSTEMIC LUPUS ERYTHEMATOSUS
     Dosage: 7.5 MG/DAY
     Route: 048
     Dates: start: 20091031, end: 20110131

REACTIONS (5)
  - PULMONARY EMBOLISM [None]
  - MATERNAL EXPOSURE DURING PREGNANCY [None]
  - DEEP VEIN THROMBOSIS [None]
  - FOETAL EXPOSURE DURING PREGNANCY [None]
  - PREGNANCY [None]
